FAERS Safety Report 15377702 (Version 3)
Quarter: 2018Q3

REPORT INFORMATION
  Report Type: Report from Study
  Country: MX (occurrence: MX)
  Receive Date: 20180913
  Receipt Date: 20180926
  Transmission Date: 20181010
  Serious: Yes (Other)
  Sender: FDA-Public Use
  Company Number: PHHY2018MX095335

PATIENT
  Age: 70 Year
  Sex: Female
  Weight: 70 kg

DRUGS (11)
  1. GALVUS MET [Suspect]
     Active Substance: METFORMIN HYDROCHLORIDE\VILDAGLIPTIN
     Indication: DIABETES MELLITUS
     Dosage: 2 DF, (METFORMIN 500 MG, VILDAGLIPTIN 50 MG), 1 IN MORNING AND 1 IN AFTERNOON QD
     Route: 048
  2. SERENEX [Concomitant]
     Indication: DIZZINESS
     Dosage: 0.5 MG, UNK (SINCE 1 YEAR)
     Route: 048
  3. TRILEPTAL [Suspect]
     Active Substance: OXCARBAZEPINE
     Indication: VERTIGO
     Dosage: 0.5 DF (300 MG), QD
     Route: 048
  4. AVALIDE [Concomitant]
     Active Substance: HYDROCHLOROTHIAZIDE\IRBESARTAN
     Dosage: 1 DF (50/500, UNITS NOT PROVIDED), BID (6 YEARS AGO)
  5. OXCARBAZEPINE. [Suspect]
     Active Substance: OXCARBAZEPINE
     Indication: DIZZINESS
     Dosage: 0.5 MG, QD (300MG )
     Route: 048
     Dates: start: 20180908, end: 20180908
  6. BETAHISTINE DIHYDROCHLORIDE [Concomitant]
     Active Substance: BETAHISTINE
     Indication: VERTIGO
     Dosage: UNK
     Route: 048
     Dates: start: 201505
  7. TRILEPTAL [Suspect]
     Active Substance: OXCARBAZEPINE
     Indication: DIZZINESS
  8. CLONAZEPAM. [Concomitant]
     Active Substance: CLONAZEPAM
     Indication: ANXIETY
     Dosage: 0.25 MG, (APPROXIMATELY 1 YEAR AGO)
     Route: 048
  9. AVALIDE [Concomitant]
     Active Substance: HYDROCHLOROTHIAZIDE\IRBESARTAN
     Indication: HYPERTENSION
     Dosage: 1 DF, QD (MORNING) (APPROXIMATELY 1 YEAR AGO)
     Route: 065
     Dates: start: 201506
  10. SERENEX [Concomitant]
     Indication: ANXIETY
     Dosage: 0.25 DF (APPROXIMATELY 1 YEAR AGO)
     Route: 065
  11. VONTROL [Concomitant]
     Active Substance: DIPHENIDOL HYDROCHLORIDE
     Indication: PRODUCT USED FOR UNKNOWN INDICATION
     Dosage: 1 DF (25 MG), Q12H
     Route: 065
     Dates: start: 20150608, end: 20150622

REACTIONS (10)
  - Chest discomfort [Recovered/Resolved]
  - Dizziness [Recovered/Resolved]
  - Vomiting [Unknown]
  - Drug ineffective [Unknown]
  - Burning sensation [Recovered/Resolved]
  - Cerebral disorder [Recovered/Resolved]
  - Tongue disorder [Recovered/Resolved]
  - Product use in unapproved indication [Recovered/Resolved]
  - Wrong technique in product usage process [Recovered/Resolved]
  - Blindness [Unknown]

NARRATIVE: CASE EVENT DATE: 20180908
